FAERS Safety Report 6172215-6 (Version None)
Quarter: 2009Q2

REPORT INFORMATION
  Report Type: 
  Country: None (occurrence: None)
  Receive Date: 20090424
  Receipt Date: 20090424
  Transmission Date: 20091009
  Serious: No
  Sender: FDA-Public Use
  Company Number: None

PATIENT
  Sex: Female
  Weight: 70.3075 kg

DRUGS (2)
  1. SALONPAS [Suspect]
     Indication: MUSCULOSKELETAL PAIN
     Dosage: 1 PATCH INITIAL PATCH TOP
     Route: 061
     Dates: start: 20090419, end: 20090419
  2. SALONPAS [Suspect]
     Indication: NECK PAIN
     Dosage: 1 PATCH INITIAL PATCH TOP
     Route: 061
     Dates: start: 20090419, end: 20090419

REACTIONS (1)
  - APPLICATION SITE IRRITATION [None]
